FAERS Safety Report 23614112 (Version 4)
Quarter: 2024Q3

REPORT INFORMATION
  Report Type: Report from Study
  Country: CN (occurrence: CN)
  Receive Date: 20240310
  Receipt Date: 20240705
  Transmission Date: 20241017
  Serious: Yes (Hospitalization)
  Sender: ABBVIE
  Company Number: CN-ABBVIE-5651971

PATIENT
  Age: 29 Year
  Sex: Female
  Weight: 52 kg

DRUGS (8)
  1. RINVOQ [Suspect]
     Active Substance: UPADACITINIB
     Indication: Dermatitis atopic
     Dosage: FORM STRENGTH: 15 MILLIGRAM
     Route: 048
     Dates: start: 202312, end: 20240115
  2. RINVOQ [Suspect]
     Active Substance: UPADACITINIB
     Indication: Dermatitis atopic
     Dosage: FIRST ADMIN DATE-JAN 2024
     Route: 048
  3. UREA [Concomitant]
     Active Substance: UREA
     Indication: Dermatitis atopic
     Route: 062
     Dates: start: 20240115
  4. LORATADINE [Concomitant]
     Active Substance: LORATADINE
     Indication: Dermatitis atopic
     Route: 048
     Dates: start: 20240117, end: 20240326
  5. CRISABOROLE [Concomitant]
     Active Substance: CRISABOROLE
     Indication: Dermatitis atopic
     Dosage: OINTMENT
     Route: 061
     Dates: start: 20240115
  6. AMINOPHYLLINE [Concomitant]
     Active Substance: AMINOPHYLLINE
     Indication: Dermatitis atopic
     Dosage: 0.25 GRAM
     Route: 041
     Dates: start: 20240128, end: 20240204
  7. DERMATOPHAGOIDES FARINAE [Concomitant]
     Active Substance: DERMATOPHAGOIDES FARINAE
     Indication: Immune tolerance induction
     Dosage: 2 DROP
     Route: 060
     Dates: start: 20240117
  8. MOMETASONE FUROATE [Concomitant]
     Active Substance: MOMETASONE FUROATE
     Indication: Dermatitis atopic
     Dosage: TIME INTERVAL: AS NECESSARY: FREQUENCY TEXT: PRN, 0.5 G
     Route: 061
     Dates: start: 20240508

REACTIONS (4)
  - Asthma [Recovering/Resolving]
  - Pneumonia [Recovered/Resolved]
  - Upper respiratory tract infection [Recovered/Resolved]
  - Cheilitis [Recovered/Resolved]

NARRATIVE: CASE EVENT DATE: 20240128
